FAERS Safety Report 7577436-3 (Version None)
Quarter: 2011Q2

REPORT INFORMATION
  Report Type: 
  Country: None (occurrence: None)
  Receive Date: 20110628
  Receipt Date: 20110602
  Transmission Date: 20111010
  Serious: Yes (Hospitalization, Other)
  Sender: FDA-Public Use
  Company Number: US-BAYER-2011-016163

PATIENT
  Age: 40 Year
  Sex: Female
  Weight: 61 kg

DRUGS (3)
  1. MINOCYCLINE HCL [Concomitant]
  2. YAZ [Suspect]
     Indication: PRODUCT USED FOR UNKNOWN INDICATION
     Dosage: UNK
     Route: 048
     Dates: start: 20080101, end: 20081028
  3. FERROUS SULFATE TAB [Concomitant]

REACTIONS (7)
  - CARDIO-RESPIRATORY ARREST [None]
  - CARDIOMYOPATHY [None]
  - RESPIRATORY FAILURE [None]
  - CARDIAC FAILURE [None]
  - METABOLIC ACIDOSIS [None]
  - ENCEPHALOPATHY [None]
  - THROMBOSIS [None]
